FAERS Safety Report 4810899-2 (Version None)
Quarter: 2005Q4

REPORT INFORMATION
  Report Type: 
  Country: None (occurrence: None)
  Receive Date: 20051025
  Receipt Date: 20051020
  Transmission Date: 20060501
  Serious: Yes (Death)
  Sender: FDA-Public Use
  Company Number: USA0510110083

PATIENT
  Age: 24 Year
  Sex: Female
  Weight: 63 kg

DRUGS (3)
  1. ZYPREXA [Suspect]
     Indication: BIPOLAR DISORDER
     Dosage: 20 MG DAY
  2. MIDRIN [Concomitant]
  3. CELEBREX [Concomitant]

REACTIONS (6)
  - ALCOHOL USE [None]
  - DRUG DOSE OMISSION [None]
  - DRUG TOXICITY [None]
  - HEAT EXPOSURE INJURY [None]
  - OVERDOSE [None]
  - THERMAL BURN [None]
